FAERS Safety Report 19829831 (Version 1)
Quarter: 2021Q3

REPORT INFORMATION
  Report Type: Spontaneous
  Country: US (occurrence: US)
  Receive Date: 20210914
  Receipt Date: 20210914
  Transmission Date: 20211014
  Serious: Yes (Other)
  Sender: FDA-Public Use
  Company Number: None

PATIENT
  Age: 25 Year
  Sex: Female
  Weight: 65.32 kg

DRUGS (6)
  1. KYLEENA [Suspect]
     Active Substance: LEVONORGESTREL
  2. FLUVOXAMINE [Concomitant]
     Active Substance: FLUVOXAMINE
  3. CLINCAMYCIN [Concomitant]
  4. MELATONIN [Concomitant]
     Active Substance: MELATONIN
  5. ADDERALL [Concomitant]
     Active Substance: AMPHETAMINE ASPARTATE\AMPHETAMINE SULFATE\DEXTROAMPHETAMINE SACCHARATE\DEXTROAMPHETAMINE SULFATE
  6. TAZORAC [Concomitant]
     Active Substance: TAZAROTENE

REACTIONS (3)
  - Device dislocation [None]
  - Unevaluable event [None]
  - Device expulsion [None]

NARRATIVE: CASE EVENT DATE: 20210903
